FAERS Safety Report 25065717 (Version 2)
Quarter: 2025Q1

REPORT INFORMATION
  Report Type: Report from Study
  Country: US (occurrence: US)
  Receive Date: 20250311
  Receipt Date: 20250326
  Transmission Date: 20250409
  Serious: No
  Sender: ABBVIE
  Company Number: US-ABBVIE-6163761

PATIENT
  Age: 69 Year
  Sex: Female
  Weight: 73.48 kg

DRUGS (1)
  1. HUMIRA [Suspect]
     Active Substance: ADALIMUMAB
     Indication: Undifferentiated connective tissue disease
     Dosage: CITRATE FREE
     Route: 058
     Dates: start: 20240216

REACTIONS (4)
  - Vitreous floaters [Unknown]
  - Nasopharyngitis [Recovered/Resolved]
  - Middle ear effusion [Recovered/Resolved]
  - Respiratory tract congestion [Recovered/Resolved]

NARRATIVE: CASE EVENT DATE: 20250112
